FAERS Safety Report 4406729-3 (Version None)
Quarter: 2004Q3

REPORT INFORMATION
  Report Type: 
  Country: None (occurrence: None)
  Receive Date: 20040715
  Receipt Date: 20040707
  Transmission Date: 20050211
  Serious: Yes (Other)
  Sender: FDA-Public Use
  Company Number: 2004-07-0200

PATIENT
  Age: 67 Year
  Sex: Female

DRUGS (2)
  1. CELESTAMINE TAB [Suspect]
     Indication: RASH
     Dosage: ORAL
     Route: 048
  2. NEORAL [Suspect]
     Indication: PSORIASIS
     Dosage: 4 MG/KG/D ORAL
     Route: 048
     Dates: start: 20010731, end: 20010823

REACTIONS (8)
  - ADULT T-CELL LYMPHOMA/LEUKAEMIA [None]
  - BLOOD IMMUNOGLOBULIN A DECREASED [None]
  - C-REACTIVE PROTEIN INCREASED [None]
  - HYPERPROTEINAEMIA [None]
  - PSORIASIS [None]
  - PYREXIA [None]
  - SKIN DESQUAMATION [None]
  - WHITE BLOOD CELL COUNT INCREASED [None]
